FAERS Safety Report 10619976 (Version 1)
Quarter: 2014Q4

REPORT INFORMATION
  Report Type: Spontaneous
  Country: US (occurrence: None)
  Receive Date: 20141126
  Receipt Date: 20141126
  Transmission Date: 20150529
  Serious: Yes (Other)
  Sender: FDA-Public Use
  Company Number: US2014023372

PATIENT
  Age: 52 Year
  Sex: Male

DRUGS (2)
  1. SENSODYNE COMPLETE PROTECTION EXTRA FRESH [Suspect]
     Active Substance: STANNOUS FLUORIDE
     Indication: SENSITIVITY OF TEETH
     Dosage: DENTAL
     Route: 004
     Dates: start: 20141114, end: 20141114
  2. SENSODYNE COMPLETE PROTECTION EXTRA FRESH [Suspect]
     Active Substance: STANNOUS FLUORIDE
     Indication: DENTAL CARE
     Dosage: DENTAL
     Route: 004
     Dates: start: 20141114, end: 20141114

REACTIONS (4)
  - Tooth disorder [None]
  - Loose tooth [None]
  - Gingival pain [None]
  - Tooth abscess [None]

NARRATIVE: CASE EVENT DATE: 20141114
